FAERS Safety Report 6029038-8 (Version None)
Quarter: 2008Q4

REPORT INFORMATION
  Report Type: 
  Country: None (occurrence: None)
  Receive Date: 20081230
  Receipt Date: 20081215
  Transmission Date: 20090506
  Serious: Yes (Disabling)
  Sender: FDA-Public Use
  Company Number: 2008-188581-NL

PATIENT
  Sex: Male

DRUGS (5)
  1. ROCURONIUM BROMIDE [Suspect]
     Indication: HYPOTONIA
     Dates: start: 20081215, end: 20081215
  2. FENTANYL-100 [Suspect]
     Dosage: INTRAVENOUS (NOS)
     Route: 042
     Dates: start: 20081215, end: 20081215
  3. MORPHINE HYDROCHLORIDE [Suspect]
     Dosage: EPIDURAL
     Route: 008
     Dates: start: 20081215, end: 20081215
  4. DROPERIDOL [Suspect]
     Dosage: INTRAVENOUS (NOS)
     Route: 042
     Dates: start: 20081215, end: 20081215
  5. NEOSTIGMINE METILSULFATE [Suspect]
     Indication: ANAESTHESIA REVERSAL
     Dosage: INTRAVENOUS (NOS)
     Route: 042
     Dates: start: 20081215, end: 20081215

REACTIONS (2)
  - PRURITUS [None]
  - RESPIRATORY ARREST [None]
